FAERS Safety Report 7648270-0 (Version None)
Quarter: 2011Q3

REPORT INFORMATION
  Report Type: 
  Country: None (occurrence: None)
  Receive Date: 20110801
  Receipt Date: 20110726
  Transmission Date: 20111222
  Serious: Yes (Hospitalization)
  Sender: FDA-Public Use
  Company Number: US-ACTELION-A-US2011-51763

PATIENT

DRUGS (3)
  1. PRADAXA [Concomitant]
  2. TRACLEER [Suspect]
     Indication: PULMONARY ARTERIAL HYPERTENSION
     Dosage: UNK
     Route: 048
     Dates: start: 20090304
  3. REVATIO [Concomitant]

REACTIONS (4)
  - CHEST PAIN [None]
  - INFECTION [None]
  - PNEUMONIA [None]
  - ANAEMIA [None]
